FAERS Safety Report 12334702 (Version 2)
Quarter: 2016Q4

REPORT INFORMATION
  Report Type: Spontaneous
  Country: US (occurrence: US)
  Receive Date: 20160504
  Receipt Date: 20161006
  Transmission Date: 20170207
  Serious: Yes (Other)
  Sender: FDA-Public Use
  Company Number: US-CELGENEUS-USA-2016046045

PATIENT
  Sex: Female

DRUGS (1)
  1. OTEZLA [Suspect]
     Active Substance: APREMILAST
     Indication: PSORIATIC ARTHROPATHY
     Dosage: 2 WEEK STARTER PACK
     Route: 048
     Dates: start: 20160218

REACTIONS (3)
  - Neoplasm malignant [Unknown]
  - Multiple allergies [Unknown]
  - Cognitive disorder [Unknown]
